FAERS Safety Report 8192011-8 (Version None)
Quarter: 2012Q1

REPORT INFORMATION
  Report Type: 
  Country: None (occurrence: None)
  Receive Date: 20120307
  Receipt Date: 20120302
  Transmission Date: 20120608
  Serious: Yes (Other)
  Sender: FDA-Public Use
  Company Number: PHHY2012BR019150

PATIENT
  Sex: Male
  Weight: 96 kg

DRUGS (2)
  1. EXELON [Suspect]
  2. EXELON [Suspect]
     Indication: HEADACHE
     Dosage: 4.6 MG/24 HS
     Route: 062
     Dates: end: 20120301

REACTIONS (4)
  - HYPERSENSITIVITY [None]
  - ERYTHEMA [None]
  - BLISTER [None]
  - PRURITUS [None]
